FAERS Safety Report 11748788 (Version 2)
Quarter: 2016Q1

REPORT INFORMATION
  Report Type: Spontaneous
  Country: US (occurrence: US)
  Receive Date: 20151118
  Receipt Date: 20160301
  Transmission Date: 20160525
  Serious: Yes (Other)
  Sender: FDA-Public Use
  Company Number: US-ASTRAZENECA-2015SF09812

PATIENT
  Age: 85 Year
  Sex: Female
  Weight: 79.4 kg

DRUGS (14)
  1. BYDUREON [Suspect]
     Active Substance: EXENATIDE
     Indication: DIABETES MELLITUS
     Route: 058
  2. ALLOPURINOL. [Concomitant]
     Active Substance: ALLOPURINOL
  3. LEVOTHYROXINE. [Concomitant]
     Active Substance: LEVOTHYROXINE
  4. NEVANAC [Concomitant]
     Active Substance: NEPAFENAC
     Dosage: DAILY
  5. FUROSEMIDE. [Concomitant]
     Active Substance: FUROSEMIDE
  6. LANTUS [Concomitant]
     Active Substance: INSULIN GLARGINE
     Dosage: 42 UNKNOWN DAILY
  7. LATANOPROST. [Concomitant]
     Active Substance: LATANOPROST
     Dosage: DAILY
  8. LUCENTIS [Concomitant]
     Active Substance: RANIBIZUMAB
  9. DIGOXIN. [Concomitant]
     Active Substance: DIGOXIN
  10. WARFARIN [Concomitant]
     Active Substance: WARFARIN
  11. ATORVASTATIN [Concomitant]
     Active Substance: ATORVASTATIN
  12. BABY ASPIRIN [Concomitant]
     Active Substance: ASPIRIN
  13. CANDESARTAN CILEXETIL. [Concomitant]
     Active Substance: CANDESARTAN CILEXETIL
  14. VERAPAMIL [Concomitant]
     Active Substance: VERAPAMIL HYDROCHLORIDE

REACTIONS (3)
  - Eye disorder [Unknown]
  - Glaucoma [Unknown]
  - Product quality issue [Unknown]
